FAERS Safety Report 25079073 (Version 1)
Quarter: 2025Q1

REPORT INFORMATION
  Report Type: Spontaneous
  Country: US (occurrence: US)
  Receive Date: 20250314
  Receipt Date: 20250314
  Transmission Date: 20250408
  Serious: Yes (Hospitalization, Other)
  Sender: AMGEN
  Company Number: US-AMGEN-USASP2025047933

PATIENT
  Age: 52 Year
  Sex: Female

DRUGS (2)
  1. OTEZLA [Suspect]
     Active Substance: APREMILAST
     Indication: Behcet^s syndrome
     Route: 065
     Dates: start: 2020, end: 20250227
  2. OTEZLA [Suspect]
     Active Substance: APREMILAST
     Indication: Skin disorder
     Route: 065
     Dates: start: 20250308

REACTIONS (5)
  - Behcet^s syndrome [Unknown]
  - Cholecystectomy [Unknown]
  - Hernia [Not Recovered/Not Resolved]
  - Stoma prolapse [Unknown]
  - Therapy interrupted [Unknown]

NARRATIVE: CASE EVENT DATE: 20250101
